FAERS Safety Report 23627907 (Version 1)
Quarter: 2024Q1

REPORT INFORMATION
  Report Type: Spontaneous
  Country: US (occurrence: US)
  Receive Date: 20240313
  Receipt Date: 20240313
  Transmission Date: 20240410
  Serious: Yes (Hospitalization, Other)
  Sender: FDA-Public Use
  Company Number: US-LAURUS LABS LIMITED-2024LAU000022

PATIENT

DRUGS (2)
  1. GABAPENTIN [Suspect]
     Active Substance: GABAPENTIN
     Indication: Product used for unknown indication
     Dosage: UNK
     Route: 065
  2. ORGOVYX [Suspect]
     Active Substance: RELUGOLIX
     Indication: Prostate cancer
     Dosage: 120 MILLIGRAM, QD
     Route: 048
     Dates: start: 20230723

REACTIONS (5)
  - Spinal fusion surgery [Unknown]
  - Incision site pain [Recovering/Resolving]
  - Pain in extremity [Recovering/Resolving]
  - Urinary incontinence [Unknown]
  - Back pain [Recovering/Resolving]
